FAERS Safety Report 10090999 (Version 3)
Quarter: 2014Q2

REPORT INFORMATION
  Report Type: Spontaneous
  Country: US (occurrence: US)
  Receive Date: 20140421
  Receipt Date: 20140529
  Transmission Date: 20141212
  Serious: Yes (Hospitalization)
  Sender: FDA-Public Use
  Company Number: US-BRACCO-010737

PATIENT
  Age: 76 Year
  Sex: Female

DRUGS (4)
  1. ISOVUE-M [Suspect]
     Indication: X-RAY
     Route: 037
     Dates: start: 20140415, end: 20140415
  2. CRESTOR [Concomitant]
  3. PROZAC [Concomitant]
  4. LIDOCAINE [Concomitant]
     Dates: start: 20140415, end: 20140415

REACTIONS (5)
  - Off label use [Recovered/Resolved]
  - Convulsion [Recovered/Resolved]
  - Aggression [Recovered/Resolved]
  - Blood pressure decreased [Recovered/Resolved]
  - Vomiting [Recovered/Resolved]
